FAERS Safety Report 16470171 (Version 1)
Quarter: 2019Q2

REPORT INFORMATION
  Report Type: Spontaneous
  Country: CA (occurrence: CA)
  Receive Date: 20190624
  Receipt Date: 20190624
  Transmission Date: 20190711
  Serious: Yes (Hospitalization, Other)
  Sender: FDA-Public Use
  Company Number: CA-SA-2019SA166746

PATIENT
  Age: 63 Year
  Sex: Male

DRUGS (2)
  1. MELATONIN [Suspect]
     Active Substance: MELATONIN
  2. CLONAZEPAM. [Suspect]
     Active Substance: CLONAZEPAM
     Dosage: LOW-DOSE  0.5 MG AT BEDTIME

REACTIONS (8)
  - Muscle rigidity [Unknown]
  - Parkinsonism [Unknown]
  - Cognitive disorder [Recovering/Resolving]
  - Drug ineffective [Unknown]
  - Impaired quality of life [Unknown]
  - Dementia [Unknown]
  - Somnolence [Unknown]
  - Bradykinesia [Unknown]
